FAERS Safety Report 17668033 (Version 1)
Quarter: 2020Q2

REPORT INFORMATION
  Report Type: Report from Study
  Country: None (occurrence: CA)
  Receive Date: 20200415
  Receipt Date: 20200415
  Transmission Date: 20200713
  Serious: Yes (Hospitalization)
  Sender: FDA-Public Use
  Company Number: CA-ABBVIE-20K-028-3362974-00

PATIENT
  Age: 36 Year
  Sex: Male

DRUGS (1)
  1. HUMIRA [Suspect]
     Active Substance: ADALIMUMAB
     Indication: PRODUCT USED FOR UNKNOWN INDICATION
     Route: 058
     Dates: start: 20161226

REACTIONS (17)
  - Intestinal ulcer [Unknown]
  - Drug level abnormal [Unknown]
  - Haematochezia [Unknown]
  - Small intestinal obstruction [Unknown]
  - Gastrointestinal inflammation [Unknown]
  - Pouchitis [Unknown]
  - Polyp [Unknown]
  - Diarrhoea [Unknown]
  - Erythema [Unknown]
  - Erythema [Unknown]
  - Enteritis [Unknown]
  - Inflammatory bowel disease [Unknown]
  - Haemorrhoids [Unknown]
  - Hyperaesthesia [Unknown]
  - Frequent bowel movements [Unknown]
  - Burning sensation [Unknown]
  - Intestinal anastomosis [Unknown]

NARRATIVE: CASE EVENT DATE: 2018
